FAERS Safety Report 6803768-X (Version None)
Quarter: 2010Q2

REPORT INFORMATION
  Report Type: 
  Country: None (occurrence: None)
  Receive Date: 20100628
  Receipt Date: 20100617
  Transmission Date: 20101027
  Serious: Yes (Other)
  Sender: FDA-Public Use
  Company Number: US-JNJCH-2010014630

PATIENT
  Age: 65 Year
  Sex: Male
  Weight: 79.4 kg

DRUGS (1)
  1. BENADRYL [Suspect]
     Indication: HYPERSENSITIVITY
     Route: 048

REACTIONS (12)
  - CONDITION AGGRAVATED [None]
  - COUGH [None]
  - DYSPNOEA [None]
  - EPISTAXIS [None]
  - HAEMOPTYSIS [None]
  - HYPERSENSITIVITY [None]
  - INFECTION [None]
  - LUNG INFECTION [None]
  - OPEN WOUND [None]
  - PRODUCT QUALITY ISSUE [None]
  - RESPIRATORY TRACT INFECTION [None]
  - SKIN DISCOLOURATION [None]
